FAERS Safety Report 9524888 (Version 1)
Quarter: 2013Q1

REPORT INFORMATION
  Report Type: Spontaneous
  Country: US (occurrence: None)
  Receive Date: 20130314
  Receipt Date: 20130314
  Transmission Date: 20140127
  Serious: No
  Sender: FDA-Public Use
  Company Number: 1301USA007947

PATIENT
  Age: 57 Year
  Sex: Male
  Weight: 104.3 kg

DRUGS (9)
  1. VICTRELIS (BOCEPREVIR) CAPSULE, 200MG [Suspect]
     Dosage: 4 DF, TID, ORAL
     Route: 048
  2. PEGINTRON (PEGINTRFERON ALFA-2B) POWDER FOR INJECTION, 150MICROGRAM [Suspect]
  3. RIBAVIRIN (RIBABIRIN) (CAPSULE), 200MG [Concomitant]
  4. KLONOPIN (CLONAZEPAM) TABLET, 1 MG [Concomitant]
  5. LISINOPRIL (LISINOPRIL) TABLET, 10 MG [Concomitant]
  6. OMEPRAZOLE (OMEPRAZOLE) CAPSULE 20 MG [Concomitant]
  7. RANITIDINE (RANITIDINE) TABLET, 200 MG [Concomitant]
  8. WELLBUTRIN (BUPROPION HYDROCHLORIDE) TABLET, 100 MG [Concomitant]
  9. CELEXA (CITALOPRAM HYDROBROMIDE) TABLET, 10 MG [Concomitant]

REACTIONS (1)
  - Blister [None]
